FAERS Safety Report 5261262-4 (Version None)
Quarter: 2007Q1

REPORT INFORMATION
  Report Type: 
  Country: None (occurrence: None)
  Receive Date: 20070309
  Receipt Date: 20070228
  Transmission Date: 20070707
  Serious: Yes (Other)
  Sender: FDA-Public Use
  Company Number: US-PFIZER INC-2007016804

PATIENT
  Sex: Male

DRUGS (1)
  1. EXUBERA [Suspect]
     Route: 055
     Dates: start: 20070101, end: 20070201

REACTIONS (3)
  - CHEST DISCOMFORT [None]
  - HAEMOPTYSIS [None]
  - LUNG DISORDER [None]
